FAERS Safety Report 9368116 (Version 1)
Quarter: 2013Q2

REPORT INFORMATION
  Report Type: Spontaneous
  Country: US (occurrence: US)
  Receive Date: 20130625
  Receipt Date: 20130625
  Transmission Date: 20140414
  Serious: No
  Sender: FDA-Public Use
  Company Number: US-ASTELLAS-2012US011468

PATIENT
  Age: 72 Year
  Sex: Female
  Weight: 82 kg

DRUGS (6)
  1. VESICARE [Suspect]
     Indication: HYPERTONIC BLADDER
     Dosage: 5 MG, UID/QD
     Route: 048
     Dates: start: 20121115, end: 20121115
  2. PRILOSEC                           /00661201/ [Concomitant]
     Indication: GASTROOESOPHAGEAL REFLUX DISEASE
     Dosage: 20 MG, BID
     Route: 048
  3. CELEBREX [Concomitant]
     Indication: ARTHRITIS
     Dosage: UNK
     Route: 065
  4. POTASSIUM [Concomitant]
     Indication: ABDOMINAL PAIN UPPER
     Dosage: 20 MG, BID
     Route: 048
  5. VALIUM                             /00017001/ [Concomitant]
     Indication: SLEEP DISORDER
     Dosage: 10 MG, UID/QD
     Route: 048
  6. MACROGOL [Concomitant]
     Indication: CONSTIPATION
     Dosage: UNK
     Route: 065

REACTIONS (1)
  - Pelvic discomfort [Unknown]
